FAERS Safety Report 6534000-2 (Version None)
Quarter: 2010Q1

REPORT INFORMATION
  Report Type: 
  Country: None (occurrence: None)
  Receive Date: 20100112
  Receipt Date: 20100104
  Transmission Date: 20100710
  Serious: Yes (Hospitalization, Other)
  Sender: FDA-Public Use
  Company Number: FR-ROCHE-677420

PATIENT
  Sex: Male

DRUGS (11)
  1. CAPECITABINE [Suspect]
     Indication: GASTRIC CANCER
     Dosage: FREQ: CYCLIC
     Route: 065
     Dates: start: 20060317, end: 20060422
  2. EPIRUBICIN HYDROCHLORIDE [Suspect]
     Indication: GASTRIC CANCER
     Dosage: FREQ: CYCLIC
     Route: 065
     Dates: start: 20060317, end: 20060422
  3. CISPLATIN [Suspect]
     Indication: GASTRIC CANCER
     Dosage: FREQ: CYCLIC
     Route: 065
     Dates: start: 20060317, end: 20060422
  4. EFFERALGAN [Concomitant]
     Indication: ABDOMINAL PAIN
     Route: 048
     Dates: start: 20060309
  5. SUCRALFATE [Concomitant]
     Indication: ABDOMINAL PAIN
     Route: 048
     Dates: start: 20060214
  6. ACTISKENAN [Concomitant]
     Indication: ABDOMINAL PAIN
     Route: 048
     Dates: start: 20060309
  7. LEXOMIL [Concomitant]
     Indication: INSOMNIA
     Dosage: OTHER INDICATION: ANXIETY
     Route: 048
     Dates: start: 20060309
  8. NEXIUM [Concomitant]
     Route: 048
     Dates: start: 20060316
  9. DURAGESIC-100 [Concomitant]
     Indication: ABDOMINAL PAIN
     Route: 058
     Dates: start: 20060410
  10. ZOPHREN [Concomitant]
     Route: 048
     Dates: start: 20060412, end: 20060416
  11. NULYTELY [Concomitant]
     Indication: CONSTIPATION PROPHYLAXIS
     Route: 048
     Dates: start: 20060309, end: 20060423

REACTIONS (3)
  - DIARRHOEA [None]
  - MALIGNANT NEOPLASM PROGRESSION [None]
  - VOMITING [None]
